FAERS Safety Report 6642301-2 (Version None)
Quarter: 2010Q1

REPORT INFORMATION
  Report Type: 
  Country: None (occurrence: None)
  Receive Date: 20100316
  Receipt Date: 20100302
  Transmission Date: 20100710
  Serious: Yes (Other)
  Sender: FDA-Public Use
  Company Number: JPI-P-009953

PATIENT
  Age: 51 Year
  Sex: Female

DRUGS (1)
  1. XYREM [Suspect]
     Indication: DRUG USE FOR UNKNOWN INDICATION
     Dosage: 4.5 GM (2.25 GM, 2 IN 1 D), ORAL; 4.5 GM (4.5 GM, 1 IN 1 D), ORAL; 3 GM (3 GM, 1 IN 1 D), ORAL
     Route: 048
     Dates: start: 20030920

REACTIONS (1)
  - BREAST CANCER FEMALE [None]
